FAERS Safety Report 7132399-X (Version None)
Quarter: 2010Q4

REPORT INFORMATION
  Report Type: 
  Country: None (occurrence: None)
  Receive Date: 20101202
  Receipt Date: 20101123
  Transmission Date: 20110411
  Serious: Yes (Hospitalization)
  Sender: FDA-Public Use
  Company Number: KR-ROCHE-719337

PATIENT
  Age: 35 Year
  Sex: Male
  Weight: 68.3 kg

DRUGS (9)
  1. DILATREND [Suspect]
     Route: 065
     Dates: start: 20081114
  2. BENZBROMARONE [Concomitant]
     Dates: start: 20090916
  3. ATORVASTATIN CALCIUM [Concomitant]
     Dates: start: 20081226
  4. TENORMIN [Concomitant]
     Dates: start: 20091027
  5. URSODIOL [Concomitant]
     Dates: start: 20100511
  6. METHYLPREDNISOLONE [Concomitant]
     Dates: start: 20081114
  7. METHYLPREDNISOLONE [Concomitant]
     Dosage: DRUG REPORTED AS METHYLON
     Dates: start: 20100615, end: 20100617
  8. AMOSARTAN [Concomitant]
     Indication: HYPERTENSION
     Dosage: OTHER INDICATION: PROTEINURIA
     Dates: start: 20100616
  9. CELLCEPT [Concomitant]
     Indication: IMMUNOSUPPRESSION
     Dates: start: 20090117, end: 20100404

REACTIONS (1)
  - TRANSPLANT REJECTION [None]
